FAERS Safety Report 8143295-3 (Version None)
Quarter: 2012Q1

REPORT INFORMATION
  Report Type: 
  Country: None (occurrence: None)
  Receive Date: 20120217
  Receipt Date: 20120214
  Transmission Date: 20120608
  Serious: Yes (Life-Threatening, Hospitalization, Other)
  Sender: FDA-Public Use
  Company Number: US-BAYER-200943651NA

PATIENT
  Age: 43 Year
  Sex: Female
  Weight: 90.703 kg

DRUGS (10)
  1. MULTI-VITAMINS [Concomitant]
  2. KETOROLAC TROMETHAMINE [Concomitant]
     Dosage: 20 MG/ML, UNK
     Route: 030
  3. FISH OIL [Concomitant]
  4. FLAXSEED OIL [Concomitant]
  5. CALCIUM [Concomitant]
     Dosage: UNK UNK, QD
     Route: 048
  6. METHYLPREDNISOLONE [Concomitant]
  7. YAZ [Suspect]
     Route: 048
     Dates: start: 20070901, end: 20090901
  8. FLEX-PLUS [Concomitant]
  9. CIPROFLOXACIN [Concomitant]
     Indication: URINARY TRACT INFECTION
     Dosage: UNK
     Dates: start: 20080714
  10. VITAMIN D [Concomitant]
     Route: 048

REACTIONS (2)
  - MYOCARDIAL INFARCTION [None]
  - CARDIAC DISORDER [None]
